FAERS Safety Report 12779650 (Version 1)
Quarter: 2016Q3

REPORT INFORMATION
  Report Type: Spontaneous
  Country: US (occurrence: US)
  Receive Date: 20160926
  Receipt Date: 20160926
  Transmission Date: 20161109
  Serious: No
  Sender: FDA-Public Use
  Company Number: US-PFIZER INC-2016442367

PATIENT
  Age: 68 Year
  Sex: Female
  Weight: 107 kg

DRUGS (2)
  1. TRAMADOL. [Concomitant]
     Active Substance: TRAMADOL
     Indication: FIBROMYALGIA
     Dosage: 50 MG, 3X/DAY
     Route: 048
  2. AROMASIN [Suspect]
     Active Substance: EXEMESTANE
     Indication: BREAST CANCER
     Dosage: 25 MG, 1X/DAY
     Route: 048

REACTIONS (7)
  - Hyperhidrosis [Not Recovered/Not Resolved]
  - Insomnia [Recovered/Resolved]
  - Muscle spasms [Not Recovered/Not Resolved]
  - Depression [Recovered/Resolved]
  - Thinking abnormal [Recovered/Resolved]
  - Hypersensitivity [Unknown]
  - Feeling abnormal [Recovered/Resolved]

NARRATIVE: CASE EVENT DATE: 201608
